FAERS Safety Report 6664547-X (Version None)
Quarter: 2010Q2

REPORT INFORMATION
  Report Type: 
  Country: None (occurrence: None)
  Receive Date: 20100401
  Receipt Date: 20100216
  Transmission Date: 20101027
  Serious: Yes (Other)
  Sender: FDA-Public Use
  Company Number: US-ASTRAZENECA-2010SE03122

PATIENT
  Age: 40 Year
  Sex: Female
  Weight: 79.8 kg

DRUGS (3)
  1. SEROQUEL XR [Suspect]
     Indication: BIPOLAR DISORDER
     Route: 048
     Dates: start: 20091102
  2. LORAZEPAM [Concomitant]
     Indication: ANXIETY
     Route: 048
     Dates: start: 20091130, end: 20100124
  3. LEXAPRO [Concomitant]
     Dates: start: 20100126

REACTIONS (1)
  - DRUG EXPOSURE DURING PREGNANCY [None]
